FAERS Safety Report 17355316 (Version 1)
Quarter: 2020Q1

REPORT INFORMATION
  Report Type: Spontaneous
  Country: IL (occurrence: IL)
  Receive Date: 20200131
  Receipt Date: 20200131
  Transmission Date: 20200409
  Serious: Yes (Death, Other)
  Sender: FDA-Public Use
  Company Number: IL-PFIZER INC-2020043695

PATIENT
  Sex: Female

DRUGS (1)
  1. AMIODACORE [Suspect]
     Active Substance: AMIODARONE
     Dosage: 200 MG, UNK (200MG X 30)

REACTIONS (4)
  - Dyspnoea [Fatal]
  - Pulmonary hypertension [Fatal]
  - Lung disorder [Fatal]
  - Respiratory disorder [Fatal]

NARRATIVE: CASE EVENT DATE: 2018
